FAERS Safety Report 14564427 (Version 2)
Quarter: 2018Q1

REPORT INFORMATION
  Report Type: Report from Study
  Country: BR (occurrence: BR)
  Receive Date: 20180222
  Receipt Date: 20180327
  Transmission Date: 20180509
  Serious: Yes (Life-Threatening, Hospitalization, Other)
  Sender: FDA-Public Use
  Company Number: PHHY2015BR114036

PATIENT
  Sex: Female
  Weight: 40 kg

DRUGS (5)
  1. BUSCOPAN [Concomitant]
     Active Substance: BUTYLSCOPOLAMINE BROMIDE
     Indication: ABDOMINAL PAIN
     Dosage: 1 TABLET IF NECESSARY
     Route: 048
     Dates: start: 2014
  2. LOSARTAN. [Concomitant]
     Active Substance: LOSARTAN
     Indication: HYPERTENSION
     Dosage: 50 MG, BID (2 TABLETS A DAY)
     Route: 048
     Dates: start: 2014
  3. SANDOSTATIN LAR DEPOT [Suspect]
     Active Substance: OCTREOTIDE ACETATE
     Dosage: 40 MG, QMO
     Route: 030
     Dates: end: 201802
  4. PANCREATIN [Concomitant]
     Active Substance: PANCRELIPASE
     Indication: PANCREATIC DISORDER
     Dosage: 500 MG, BID (2 TABLETS A DAY)
     Route: 048
     Dates: start: 2014
  5. SANDOSTATIN LAR DEPOT [Suspect]
     Active Substance: OCTREOTIDE ACETATE
     Indication: NEUROENDOCRINE TUMOUR
     Dosage: 30 MG, QMO (EVERY 28 DAYS)
     Route: 030
     Dates: start: 201407

REACTIONS (11)
  - Pain [Unknown]
  - Malaise [Unknown]
  - Haemolytic anaemia [Recovered/Resolved]
  - Depressed mood [Unknown]
  - Vomiting [Unknown]
  - Asthenia [Unknown]
  - Visual impairment [Unknown]
  - Pneumonia [Recovered/Resolved]
  - Intestinal obstruction [Unknown]
  - Body height decreased [Unknown]
  - Blood chromogranin A increased [Unknown]
